FAERS Safety Report 10655627 (Version 1)
Quarter: 2014Q4

REPORT INFORMATION
  Report Type: Spontaneous
  Country: US (occurrence: None)
  Receive Date: 20141205
  Receipt Date: 20141205
  Transmission Date: 20150529
  Serious: Yes (Other)
  Sender: FDA-Public Use
  Company Number: USA-2014105045

PATIENT
  Age: 78 Year
  Sex: Female

DRUGS (6)
  1. POMALYST [Suspect]
     Active Substance: POMALIDOMIDE
     Indication: PLASMA CELL MYELOMA
     Route: 048
     Dates: start: 201309
  2. NORVASC [Concomitant]
     Active Substance: AMLODIPINE BESYLATE
  3. CLARITHROMYCIN. [Concomitant]
     Active Substance: CLARITHROMYCIN
  4. PROCRIT (ERYTHROPOIETIN) [Concomitant]
  5. METOPROLOL [Concomitant]
     Active Substance: METOPROLOL
  6. MICARDIS [Concomitant]
     Active Substance: TELMISARTAN

REACTIONS (1)
  - Anaemia [None]

NARRATIVE: CASE EVENT DATE: 20141023
